FAERS Safety Report 11344623 (Version 1)
Quarter: 2015Q3

REPORT INFORMATION
  Report Type: Spontaneous
  Country: US (occurrence: US)
  Receive Date: 20150806
  Receipt Date: 20150806
  Transmission Date: 20151125
  Serious: Yes (Hospitalization, Other)
  Sender: FDA-Public Use
  Company Number: US-AMGEN-USASP2015078373

PATIENT
  Age: 57 Year
  Sex: Male

DRUGS (2)
  1. ENBREL [Suspect]
     Active Substance: ETANERCEPT
     Indication: PSORIASIS
     Dosage: 50 MG, QWK
     Route: 058
     Dates: start: 200403, end: 200411
  2. ENBREL [Suspect]
     Active Substance: ETANERCEPT
     Indication: PSORIATIC ARTHROPATHY

REACTIONS (11)
  - Colitis [Unknown]
  - Febrile neutropenia [Unknown]
  - Bone marrow failure [Unknown]
  - Disseminated intravascular coagulation [Unknown]
  - Left ventricular hypertrophy [Unknown]
  - Psoriasis [Unknown]
  - General physical health deterioration [Unknown]
  - Acute myeloid leukaemia [Unknown]
  - Pneumonia [Unknown]
  - Abscess jaw [Unknown]
  - Enterococcal sepsis [Unknown]
